FAERS Safety Report 9462250 (Version 2)
Quarter: 2013Q3

REPORT INFORMATION
  Report Type: Spontaneous
  Country: US (occurrence: US)
  Receive Date: 20130816
  Receipt Date: 20130904
  Transmission Date: 20140515
  Serious: Yes (Death)
  Sender: FDA-Public Use
  Company Number: US-GLAXOSMITHKLINE-A1037347A

PATIENT
  Age: 61 Year
  Sex: Male

DRUGS (14)
  1. ADVAIR [Suspect]
     Indication: ASTHMA
     Dosage: 2PUFF PER DAY
     Route: 055
  2. AMIODARONE [Concomitant]
  3. RISPERIDONE [Concomitant]
  4. COLCRYS [Concomitant]
  5. FUROSEMIDE [Concomitant]
  6. GABAPENTIN [Concomitant]
  7. INSULIN [Concomitant]
  8. METOPROLOL [Concomitant]
  9. ISOSORBIDE [Concomitant]
  10. PAROXETINE [Concomitant]
  11. ASPIRIN [Concomitant]
  12. POTASSIUM [Concomitant]
  13. RANITIDINE [Concomitant]
  14. TORSEMIDE [Concomitant]

REACTIONS (5)
  - Cardiomyopathy [Fatal]
  - Coronary artery disease [Fatal]
  - Cardiac failure congestive [Fatal]
  - Renal failure chronic [Fatal]
  - Ventricular tachycardia [Fatal]
